FAERS Safety Report 8465693-0 (Version None)
Quarter: 2012Q2

REPORT INFORMATION
  Report Type: 
  Country: None (occurrence: None)
  Receive Date: 20120620
  Receipt Date: 20120620
  Transmission Date: 20120825
  Serious: No
  Sender: FDA-Public Use
  Company Number: None

PATIENT
  Age: 80 Year
  Sex: Female
  Weight: 53.0709 kg

DRUGS (3)
  1. SULFAMETHOXAZOLE [Suspect]
     Dosage: 1 TABLET EVERY 12 HRS
     Dates: start: 20120604
  2. SULFAMETHOXAZOLE [Suspect]
     Dosage: 1 TABLET EVERY 12 HRS
     Dates: start: 20120605
  3. SULFAMETHOXAZOLE [Suspect]
     Dosage: 1 TABLET EVERY 12 HRS
     Dates: start: 20120603

REACTIONS (2)
  - VOMITING [None]
  - HEADACHE [None]
